FAERS Safety Report 4584524-2 (Version None)
Quarter: 2005Q1

REPORT INFORMATION
  Report Type: 
  Country: None (occurrence: None)
  Receive Date: 20050125
  Receipt Date: 20041004
  Transmission Date: 20050727
  Serious: No
  Sender: FDA-Public Use
  Company Number: USA041080184

PATIENT
  Sex: Female

DRUGS (6)
  1. FORTEO [Suspect]
     Indication: OSTEOPOROSIS
     Dates: start: 20040901
  2. BEXTRA [Concomitant]
  3. LIPITOR [Concomitant]
  4. SINGULAIR (MONTELUKAST) [Concomitant]
  5. CLARINEX [Concomitant]
  6. FOLIC ACID [Concomitant]

REACTIONS (1)
  - INJECTION SITE IRRITATION [None]
